FAERS Safety Report 16696581 (Version 1)
Quarter: 2019Q3

REPORT INFORMATION
  Report Type: Spontaneous
  Country: DE (occurrence: DE)
  Receive Date: 20190813
  Receipt Date: 20190813
  Transmission Date: 20191004
  Serious: Yes (Other)
  Sender: FDA-Public Use
  Company Number: DE-SAOL THERAPEUTICS-2019SAO00281

PATIENT
  Age: 53 Year
  Sex: Male
  Weight: 46.6 kg

DRUGS (3)
  1. LIORESAL [Suspect]
     Active Substance: BACLOFEN
     Dosage: 127.65 ?G, \DAY
     Route: 037
     Dates: start: 20190605, end: 20190614
  2. LIORESAL [Suspect]
     Active Substance: BACLOFEN
     Dosage: 115.99 ?G, \DAY
     Route: 037
     Dates: end: 20190605
  3. LIORESAL [Suspect]
     Active Substance: BACLOFEN
     Dosage: 2.97 ?G, \DAY MINIMUM RATE
     Route: 037
     Dates: start: 20190614

REACTIONS (10)
  - Urinary tract infection enterococcal [Unknown]
  - Calculus bladder [Unknown]
  - Intussusception [Unknown]
  - Defaecation disorder [Unknown]
  - Device failure [Recovered/Resolved]
  - White matter lesion [Unknown]
  - Pyelonephritis [Unknown]
  - Drug withdrawal syndrome [Unknown]
  - Urinary tract infection pseudomonal [Unknown]
  - Transient ischaemic attack [Unknown]

NARRATIVE: CASE EVENT DATE: 20190613
